FAERS Safety Report 21359023 (Version 1)
Quarter: 2022Q3

REPORT INFORMATION
  Report Type: Spontaneous
  Country: CA (occurrence: CA)
  Receive Date: 20220921
  Receipt Date: 20220921
  Transmission Date: 20221027
  Serious: Yes (Other)
  Sender: FDA-Public Use
  Company Number: CA-STRIDES ARCOLAB LIMITED-2022SP011998

PATIENT
  Age: 8 Year
  Sex: Male

DRUGS (3)
  1. TACROLIMUS [Suspect]
     Active Substance: TACROLIMUS
     Indication: Liver transplant
     Dosage: UNK
     Route: 065
  2. TACROLIMUS [Suspect]
     Active Substance: TACROLIMUS
     Dosage: UNK
     Route: 065
  3. CYCLOSPORINE [Suspect]
     Active Substance: CYCLOSPORINE
     Indication: Liver transplant
     Dosage: UNK
     Route: 065

REACTIONS (3)
  - Haemolytic uraemic syndrome [Recovered/Resolved]
  - Hair growth rate abnormal [Unknown]
  - Hypertension [Unknown]
